FAERS Safety Report 7121753-8 (Version None)
Quarter: 2010Q4

REPORT INFORMATION
  Report Type: 
  Country: None (occurrence: None)
  Receive Date: 20101124
  Receipt Date: 20101117
  Transmission Date: 20110411
  Serious: Yes (Other)
  Sender: FDA-Public Use
  Company Number: CH-ABBOTT-10P-151-0686327-00

PATIENT
  Age: 46 Year
  Sex: Female

DRUGS (11)
  1. SEVOFLURANE [Suspect]
     Indication: SHOULDER OPERATION
     Dates: start: 20100317, end: 20100317
  2. ETOMIDAT [Concomitant]
     Indication: SHOULDER OPERATION
     Dates: start: 20100317, end: 20100317
  3. FENTANYL [Concomitant]
     Indication: SHOULDER OPERATION
     Dates: start: 20100317, end: 20100317
  4. ROCURONIUM BROMIDE [Concomitant]
     Indication: SHOULDER OPERATION
     Dates: start: 20100317, end: 20100317
  5. CEFAZOLINUM [Concomitant]
     Indication: INFECTION PROPHYLAXIS
     Dates: start: 20100317, end: 20100317
  6. CEFAZOLINUM [Concomitant]
     Indication: SURGERY
  7. BUPIVACAIN [Concomitant]
     Indication: NERVE BLOCK
     Dates: start: 20100317, end: 20100317
  8. BUPIVACAIN [Concomitant]
     Indication: SHOULDER OPERATION
  9. MEPIVACAIN [Concomitant]
     Indication: SHOULDER OPERATION
     Dates: start: 20100317, end: 20100317
  10. MEPIVACAIN [Concomitant]
     Indication: NERVE BLOCK
  11. PARACETAMOL [Concomitant]
     Indication: PRODUCT USED FOR UNKNOWN INDICATION
     Dates: start: 20100101

REACTIONS (2)
  - HEPATITIS TOXIC [None]
  - JAUNDICE [None]
